FAERS Safety Report 24337415 (Version 1)
Quarter: 2024Q3

REPORT INFORMATION
  Report Type: Spontaneous
  Country: US (occurrence: US)
  Receive Date: 20240919
  Receipt Date: 20240919
  Transmission Date: 20241017
  Serious: No
  Sender: ASTELLAS
  Company Number: US-ASTELLAS-2024-AER-005836

PATIENT
  Sex: Female

DRUGS (1)
  1. IZERVAY [Suspect]
     Active Substance: AVACINCAPTAD PEGOL SODIUM
     Indication: Product used for unknown indication
     Dosage: INJECTION IN BOTH EYES ONCE MONTHLY
     Route: 065
     Dates: start: 202404

REACTIONS (1)
  - Photopsia [Unknown]
